FAERS Safety Report 11892458 (Version 28)
Quarter: 2018Q4

REPORT INFORMATION
  Report Type: Report from Study
  Country: BR (occurrence: BR)
  Receive Date: 20160106
  Receipt Date: 20181210
  Transmission Date: 20190204
  Serious: Yes (Life-Threatening, Hospitalization, Other)
  Sender: FDA-Public Use
  Company Number: PHHY2015BR104809

PATIENT
  Age: 63 Year
  Sex: Female
  Weight: 48 kg

DRUGS (40)
  1. AFINITOR [Suspect]
     Active Substance: EVEROLIMUS
     Dosage: 10 MG, QD
     Route: 065
     Dates: start: 201508
  2. SANDOSTATIN LAR DEPOT [Suspect]
     Active Substance: OCTREOTIDE ACETATE
     Dosage: 30 MG, QMO
     Route: 030
     Dates: start: 201510
  3. SANDOSTATIN LAR DEPOT [Suspect]
     Active Substance: OCTREOTIDE ACETATE
     Dosage: 30 MG, (EVERY 24 DAYS)
     Route: 030
  4. SOMATULINE [Suspect]
     Active Substance: LANREOTIDE ACETATE
     Indication: PRODUCT USED FOR UNKNOWN INDICATION
     Dosage: 120 MG, UNK
     Route: 065
  5. FLU VACCINE [Concomitant]
     Active Substance: INFLUENZA VIRUS VACCINE
     Indication: PRODUCT USED FOR UNKNOWN INDICATION
     Route: 065
  6. LOSARTAN POTASSIUM. [Concomitant]
     Active Substance: LOSARTAN POTASSIUM
     Indication: HYPERTENSION
     Dosage: UNK
     Route: 065
  7. AFINITOR [Suspect]
     Active Substance: EVEROLIMUS
     Dosage: 10 MG ALTERNATE TO 5 MG QD
     Route: 048
  8. AFINITOR [Suspect]
     Active Substance: EVEROLIMUS
     Dosage: 10 MG, QD
     Route: 048
  9. SANDOSTATIN LAR DEPOT [Suspect]
     Active Substance: OCTREOTIDE ACETATE
     Indication: CARCINOID SYNDROME
     Dosage: 30 MG, QMO (EVERY 28 DAYS)
     Route: 030
     Dates: start: 201401
  10. SANDOSTATIN LAR DEPOT [Suspect]
     Active Substance: OCTREOTIDE ACETATE
     Dosage: 30 MG, EVERY 23 DAYS
     Route: 030
     Dates: start: 201601
  11. SANDOSTATIN LAR DEPOT [Suspect]
     Active Substance: OCTREOTIDE ACETATE
     Dosage: 20 MG, (EVERY 24 DAYS)
     Route: 030
  12. SANDOSTATIN LAR DEPOT [Suspect]
     Active Substance: OCTREOTIDE ACETATE
     Dosage: 30 MG, QMO
     Route: 030
     Dates: end: 201806
  13. NORIPURUM [Concomitant]
     Active Substance: IRON POLYMALTOSE
     Indication: ANAEMIA
     Route: 065
  14. SELOZOK [Concomitant]
     Active Substance: METOPROLOL SUCCINATE
     Indication: HYPERTENSION
     Dosage: 1 DF, QD
     Route: 048
  15. AFINITOR [Suspect]
     Active Substance: EVEROLIMUS
     Dosage: 5 MG, QD
     Route: 048
     Dates: start: 2015
  16. AFINITOR [Suspect]
     Active Substance: EVEROLIMUS
     Dosage: 10 MG ALTERNATE TO 5 MG QD
     Route: 048
  17. FUROSEMIDE. [Suspect]
     Active Substance: FUROSEMIDE
     Indication: PERIPHERAL SWELLING
  18. AFINITOR [Suspect]
     Active Substance: EVEROLIMUS
     Dosage: 5 MG, QD
     Route: 048
  19. AFINITOR [Suspect]
     Active Substance: EVEROLIMUS
     Dosage: 5 MG, QD
     Route: 048
  20. AFINITOR [Suspect]
     Active Substance: EVEROLIMUS
     Dosage: 10 MG, QD
     Route: 048
     Dates: start: 20170103
  21. AFINITOR [Suspect]
     Active Substance: EVEROLIMUS
     Dosage: 10 MG, UNK
     Route: 048
  22. SANDOSTATIN LAR DEPOT [Suspect]
     Active Substance: OCTREOTIDE ACETATE
     Dosage: 30 MG, QMO (EVERY 30 DAYS)
     Route: 030
  23. SANDOSTATIN LAR DEPOT [Suspect]
     Active Substance: OCTREOTIDE ACETATE
     Dosage: 30 MG, (EVERY 21/22 DAYS)
     Route: 030
     Dates: start: 201510
  24. SANDOSTATIN LAR DEPOT [Suspect]
     Active Substance: OCTREOTIDE ACETATE
     Dosage: 30 MG, (EVERY 24 DAYS)
     Route: 030
  25. FUROSEMIDE. [Suspect]
     Active Substance: FUROSEMIDE
     Indication: THROMBOPHLEBITIS
     Route: 065
  26. AFINITOR [Suspect]
     Active Substance: EVEROLIMUS
     Dosage: 10 MG, QD
     Route: 048
     Dates: start: 2015
  27. AFINITOR [Suspect]
     Active Substance: EVEROLIMUS
     Dosage: 10 MG, QD
     Route: 048
  28. AFINITOR [Suspect]
     Active Substance: EVEROLIMUS
     Dosage: 10 MG, QD
     Route: 048
  29. SANDOSTATIN LAR DEPOT [Suspect]
     Active Substance: OCTREOTIDE ACETATE
     Indication: NEUROENDOCRINE TUMOUR
     Dosage: 30 MG, QMO (EVERY 28 DAYS)
     Route: 030
     Dates: start: 20141008
  30. LANREOTIDE [Suspect]
     Active Substance: LANREOTIDE
     Indication: NEUROENDOCRINE TUMOUR
     Dosage: 120 MG, UNK
     Route: 058
     Dates: start: 20180626
  31. AFINITOR [Suspect]
     Active Substance: EVEROLIMUS
     Indication: NEUROENDOCRINE TUMOUR
     Dosage: UNK, QD
     Route: 065
     Dates: start: 2014
  32. AFINITOR [Suspect]
     Active Substance: EVEROLIMUS
     Dosage: 10 MG, QD
     Route: 048
  33. AFINITOR [Suspect]
     Active Substance: EVEROLIMUS
     Dosage: 10 MG, QD
     Route: 048
  34. SANDOSTATIN LAR DEPOT [Suspect]
     Active Substance: OCTREOTIDE ACETATE
     Dosage: 30 MG, QMO (EVERY 28 DAYS)
     Route: 030
  35. SANDOSTATIN LAR DEPOT [Suspect]
     Active Substance: OCTREOTIDE ACETATE
     Dosage: 30 MG, QW3
     Route: 030
  36. CARVEDILOL. [Concomitant]
     Active Substance: CARVEDILOL
     Indication: ATRIOVENTRICULAR BLOCK
     Route: 065
  37. AFINITOR [Suspect]
     Active Substance: EVEROLIMUS
     Indication: HEPATIC CANCER
     Dosage: 10 MG, QD
     Route: 048
     Dates: start: 20150727, end: 201601
  38. SANDOSTATIN LAR DEPOT [Suspect]
     Active Substance: OCTREOTIDE ACETATE
     Dosage: 30 MG, EVERY 24 DAYS
     Route: 030
     Dates: start: 201603
  39. SANDOSTATIN LAR DEPOT [Suspect]
     Active Substance: OCTREOTIDE ACETATE
     Dosage: 30 MG, QMO
     Route: 030
     Dates: end: 20180529
  40. HYDROCHLOROTHIAZIDE. [Concomitant]
     Active Substance: HYDROCHLOROTHIAZIDE
     Indication: HYPERTENSION
     Dosage: 1 DF, QD
     Route: 048

REACTIONS (101)
  - Loss of consciousness [Unknown]
  - Deafness [Unknown]
  - Angina pectoris [Recovered/Resolved with Sequelae]
  - Cardiac disorder [Recovered/Resolved with Sequelae]
  - Gait disturbance [Unknown]
  - Osteoarthritis [Unknown]
  - Dry mouth [Unknown]
  - Blood cholesterol increased [Unknown]
  - Skin discolouration [Unknown]
  - Headache [Unknown]
  - Nasopharyngitis [Not Recovered/Not Resolved]
  - Influenza [Recovering/Resolving]
  - Hernia [Not Recovered/Not Resolved]
  - Irritability [Not Recovered/Not Resolved]
  - Drug ineffective [Unknown]
  - Malnutrition [Recovered/Resolved]
  - Myopia [Unknown]
  - Dysstasia [Unknown]
  - Abnormal dreams [Unknown]
  - Oral mucosal discolouration [Unknown]
  - Micturition urgency [Not Recovered/Not Resolved]
  - Ear congestion [Unknown]
  - Nodule [Not Recovered/Not Resolved]
  - Inappropriate schedule of product administration [Unknown]
  - Dehydration [Recovered/Resolved]
  - Depression suicidal [Unknown]
  - Dementia Alzheimer^s type [Unknown]
  - Cardiovascular insufficiency [Unknown]
  - Nausea [Not Recovered/Not Resolved]
  - Eating disorder [Recovering/Resolving]
  - Renal disorder [Unknown]
  - Vision blurred [Unknown]
  - Pain [Recovered/Resolved with Sequelae]
  - Wound [Unknown]
  - Crying [Unknown]
  - Dysphonia [Not Recovered/Not Resolved]
  - Drug intolerance [Unknown]
  - Joint swelling [Unknown]
  - Fatigue [Unknown]
  - Hepatomegaly [Unknown]
  - Noninfective gingivitis [Not Recovered/Not Resolved]
  - Hepatic pain [Not Recovered/Not Resolved]
  - Product prescribing error [Unknown]
  - Syncope [Unknown]
  - Glossodynia [Unknown]
  - Spinal disorder [Unknown]
  - Toothache [Unknown]
  - Vomiting [Unknown]
  - Abdominal discomfort [Unknown]
  - Retching [Unknown]
  - Depressed mood [Not Recovered/Not Resolved]
  - Asthenia [Not Recovered/Not Resolved]
  - Malignant neoplasm progression [Not Recovered/Not Resolved]
  - Thrombophlebitis [Not Recovered/Not Resolved]
  - Epistaxis [Recovering/Resolving]
  - Blood pressure increased [Unknown]
  - Sleep disorder due to general medical condition, insomnia type [Recovered/Resolved with Sequelae]
  - Eye pain [Unknown]
  - Increased appetite [Unknown]
  - Dry throat [Unknown]
  - Nervousness [Unknown]
  - Abdominal pain upper [Recovered/Resolved]
  - Hypothyroidism [Unknown]
  - Dyspnoea [Not Recovered/Not Resolved]
  - Blood chromogranin A increased [Unknown]
  - Flatulence [Recovered/Resolved]
  - Peripheral swelling [Not Recovered/Not Resolved]
  - Diabetes mellitus [Recovering/Resolving]
  - Polyuria [Not Recovered/Not Resolved]
  - Decreased appetite [Unknown]
  - Vomiting [Recovered/Resolved]
  - Astigmatism [Unknown]
  - Malaise [Not Recovered/Not Resolved]
  - Movement disorder [Unknown]
  - Erythema [Unknown]
  - Eye swelling [Unknown]
  - Depression [Unknown]
  - Abdominal pain upper [Unknown]
  - Abdominal distension [Unknown]
  - Weight decreased [Not Recovered/Not Resolved]
  - Diarrhoea [Recovering/Resolving]
  - Cataract [Unknown]
  - Hepatic mass [Not Recovered/Not Resolved]
  - Oral pain [Unknown]
  - Concomitant disease progression [Unknown]
  - Cough [Recovering/Resolving]
  - Weight increased [Unknown]
  - Alopecia [Unknown]
  - Blood glucose decreased [Unknown]
  - Hypoglycaemia [Recovering/Resolving]
  - Aphthous ulcer [Not Recovered/Not Resolved]
  - Feeling abnormal [Unknown]
  - Memory impairment [Recovering/Resolving]
  - Abdominal pain [Recovered/Resolved]
  - Anaemia [Recovered/Resolved with Sequelae]
  - Aphasia [Unknown]
  - Feeding disorder [Unknown]
  - Anxiety [Recovering/Resolving]
  - Head discomfort [Not Recovered/Not Resolved]
  - Dry skin [Unknown]
  - Skin discolouration [Recovered/Resolved]

NARRATIVE: CASE EVENT DATE: 201509
